FAERS Safety Report 22006936 (Version 1)
Quarter: 2023Q1

REPORT INFORMATION
  Report Type: Spontaneous
  Country: US (occurrence: US)
  Receive Date: 20230217
  Receipt Date: 20230217
  Transmission Date: 20230417
  Serious: Yes (Other)
  Sender: FDA-Public Use
  Company Number: US-BAUSCH-BL-2023-000392

PATIENT
  Age: 52 Year
  Sex: Female
  Weight: 66.738 kg

DRUGS (3)
  1. DIASTAT [Suspect]
     Active Substance: DIAZEPAM
     Indication: Rectal spasm
     Route: 065
  2. DIASTAT [Suspect]
     Active Substance: DIAZEPAM
     Indication: Off label use
  3. DIASTAT [Suspect]
     Active Substance: DIAZEPAM
     Indication: Proctalgia

REACTIONS (3)
  - Device leakage [Unknown]
  - Device breakage [Unknown]
  - Off label use [Unknown]
